FAERS Safety Report 7067466-2 (Version None)
Quarter: 2010Q4

REPORT INFORMATION
  Report Type: 
  Country: None (occurrence: None)
  Receive Date: 20101028
  Receipt Date: 20101015
  Transmission Date: 20110411
  Serious: Yes (Hospitalization)
  Sender: FDA-Public Use
  Company Number: CA-ELI_LILLY_AND_COMPANY-CA201010003963

PATIENT
  Age: 90 Year
  Sex: Female

DRUGS (7)
  1. FORTEO [Suspect]
     Indication: OSTEOPOROSIS
     Dosage: 20 UG, DAILY (1/D)
     Route: 058
     Dates: start: 20091214
  2. COUMADIN [Concomitant]
  3. SYNTHROID [Concomitant]
  4. DIOVAN [Concomitant]
  5. ATENOLOL [Concomitant]
  6. LASIX [Concomitant]
  7. POTASSIUM CHLORIDE [Concomitant]

REACTIONS (3)
  - LOCALISED INFECTION [None]
  - PLATELET COUNT DECREASED [None]
  - WEIGHT DECREASED [None]
